APPROVED DRUG PRODUCT: INTELENCE
Active Ingredient: ETRAVIRINE
Strength: 25MG
Dosage Form/Route: TABLET;ORAL
Application: N022187 | Product #003
Applicant: JANSSEN RESEARCH AND DEVELOPMENT LLC
Approved: Mar 26, 2012 | RLD: Yes | RS: No | Type: RX